FAERS Safety Report 4474971-1 (Version None)
Quarter: 2004Q3

REPORT INFORMATION
  Report Type: 
  Country: None (occurrence: None)
  Receive Date: 20040923
  Receipt Date: 20040628
  Transmission Date: 20050211
  Serious: No
  Sender: FDA-Public Use
  Company Number: USA040671254

PATIENT
  Sex: Female

DRUGS (3)
  1. FORTEO [Suspect]
     Indication: OSTEOPOROSIS
     Dates: start: 20031101
  2. ZOLOFT [Concomitant]
  3. CALCIUM CITRATE WITH VITAMIN D [Concomitant]

REACTIONS (2)
  - CRYING [None]
  - DEPRESSION [None]
